FAERS Safety Report 25404473 (Version 2)
Quarter: 2025Q3

REPORT INFORMATION
  Report Type: Spontaneous
  Country: US (occurrence: US)
  Receive Date: 20250606
  Receipt Date: 20250711
  Transmission Date: 20251021
  Serious: Yes (Other)
  Sender: ROCHE
  Company Number: US-ROCHE-10000299031

PATIENT

DRUGS (4)
  1. VABYSMO [Suspect]
     Active Substance: FARICIMAB-SVOA
     Indication: Neovascular age-related macular degeneration
     Route: 050
  2. VABYSMO [Suspect]
     Active Substance: FARICIMAB-SVOA
     Indication: Choroidal neovascularisation
  3. VABYSMO [Suspect]
     Active Substance: FARICIMAB-SVOA
  4. VABYSMO [Suspect]
     Active Substance: FARICIMAB-SVOA

REACTIONS (2)
  - Syringe issue [Unknown]
  - No adverse event [Unknown]

NARRATIVE: CASE EVENT DATE: 20250502
